FAERS Safety Report 11463328 (Version 1)
Quarter: 2015Q3

REPORT INFORMATION
  Report Type: Spontaneous
  Country: US (occurrence: US)
  Receive Date: 20150831
  Receipt Date: 20150831
  Transmission Date: 20151125
  Serious: No
  Sender: FDA-Public Use
  Company Number: US-ELI_LILLY_AND_COMPANY-US201102005855

PATIENT
  Sex: Female

DRUGS (1)
  1. CYMBALTA [Suspect]
     Active Substance: DULOXETINE HYDROCHLORIDE
     Indication: MOOD SWINGS
     Dosage: 30 MG, DAILY (1/D)
     Dates: end: 201102

REACTIONS (4)
  - Off label use [Recovered/Resolved]
  - Weight increased [Unknown]
  - Drug withdrawal syndrome [Unknown]
  - Vertigo [Unknown]
